FAERS Safety Report 8894751 (Version 1)
Quarter: 2012Q4

REPORT INFORMATION
  Report Type: Report from Study
  Country: CA (occurrence: CA)
  Receive Date: 20121108
  Receipt Date: 20121108
  Transmission Date: 20130627
  Serious: Yes (Hospitalization)
  Sender: FDA-Public Use
  Company Number: CA-ABBOTT-12P-028-1003338-00

PATIENT
  Sex: Female
  Weight: 81.72 kg

DRUGS (4)
  1. HUMIRA [Suspect]
     Indication: CROHN^S DISEASE
     Dosage: Latest dose: 26-Oct-2012
     Route: 058
     Dates: start: 20110606
  2. ASPIRIN [Concomitant]
     Indication: CARDIAC DISORDER
     Dosage: Once daily
  3. LIPITOR [Concomitant]
     Indication: CARDIAC DISORDER
  4. MATOPERAL [Concomitant]
     Indication: CARDIAC DISORDER
     Route: 048

REACTIONS (2)
  - Small intestinal obstruction [Recovered/Resolved]
  - Small intestinal obstruction [Recovered/Resolved]
